FAERS Safety Report 15821069 (Version 3)
Quarter: 2020Q1

REPORT INFORMATION
  Report Type: Spontaneous
  Country: GB (occurrence: GB)
  Receive Date: 20190114
  Receipt Date: 20200210
  Transmission Date: 20200409
  Serious: Yes (Hospitalization)
  Sender: FDA-Public Use
  Company Number: GB-MYLANLABS-2019M1003228

PATIENT
  Age: 90 Year
  Sex: Female

DRUGS (26)
  1. LEVETIRACETAM. [Suspect]
     Active Substance: LEVETIRACETAM
     Indication: PRODUCT USED FOR UNKNOWN INDICATION
     Dosage: 500 MILLIGRAM, QD
     Route: 048
  2. ACETYLSALICYLIC ACID [Concomitant]
     Active Substance: ASPIRIN
     Dosage: 75 MILLIGRAM, QD
  3. FLUTICASONE. [Concomitant]
     Active Substance: FLUTICASONE
     Dosage: 2 DOSAGE FORM EACH NOSTRIL
     Route: 045
  4. DOXYCYCLINE. [Concomitant]
     Active Substance: DOXYCYCLINE
     Dosage: TWO TO BE TAKEN ON THE FIRST DAY
  5. PARACETAMOL [Concomitant]
     Active Substance: ACETAMINOPHEN
     Dosage: 500MG-1G UP TO 4 TIMES A DAY
  6. BETAHISTINE [Concomitant]
     Active Substance: BETAHISTINE
     Dosage: 1-2 THREE TIMES DAILY
  7. LANSOPRAZOLE. [Suspect]
     Active Substance: LANSOPRAZOLE
     Indication: PRODUCT USED FOR UNKNOWN INDICATION
     Dosage: 15 MILLIGRAM, QD
  8. FOLIC ACID. [Concomitant]
     Active Substance: FOLIC ACID
     Dosage: 5 MILLIGRAM, QD
  9. METFORMIN [Concomitant]
     Active Substance: METFORMIN HYDROCHLORIDE
     Dosage: WITH EVENING MEAL
  10. PERINDOPRIL [Concomitant]
     Active Substance: PERINDOPRIL
     Dosage: MORNING BEFORE FOOD
  11. FOLIC ACID. [Concomitant]
     Active Substance: FOLIC ACID
     Dosage: UNK
  12. BETAHISTINE [Concomitant]
     Active Substance: BETAHISTINE
     Dosage: UNK
  13. DONEPEZIL. [Concomitant]
     Active Substance: DONEPEZIL
     Dosage: 5 MILLIGRAM, QD, NIGHT
  14. LANSOPRAZOLE. [Suspect]
     Active Substance: LANSOPRAZOLE
     Dosage: 60 MILLIGRAM, QD
     Route: 048
  15. DOXYCYCLINE. [Concomitant]
     Active Substance: DOXYCYCLINE
     Dosage: UNK
  16. CEFALEXIN [Concomitant]
     Active Substance: CEPHALEXIN
     Dosage: 1500 MILLIGRAM, QD
  17. CALFOVIT D3 [Concomitant]
     Dosage: 1 DOSAGE  FORM SACHET
  18. BISOPROLOL [Concomitant]
     Active Substance: BISOPROLOL
     Dosage: 1.25 MILLIGRAM, QD
  19. FUROSEMIDE. [Suspect]
     Active Substance: FUROSEMIDE
     Indication: PRODUCT USED FOR UNKNOWN INDICATION
     Dosage: MORNING
     Route: 048
  20. METFORMIN [Concomitant]
     Active Substance: METFORMIN HYDROCHLORIDE
     Dosage: UNK
  21. LATANOPROST. [Concomitant]
     Active Substance: LATANOPROST
     Dosage: ONE DROP TO BE USED AT NIGHT IN BOTH EYES, 50 UG/ML
     Route: 047
  22. CITALOPRAM [Suspect]
     Active Substance: CITALOPRAM HYDROBROMIDE
     Indication: PRODUCT USED FOR UNKNOWN INDICATION
     Dosage: 10 MILLIGRAM, QD
  23. PERINDOPRIL [Concomitant]
     Active Substance: PERINDOPRIL
     Dosage: UNK
  24. CEFALEXIN [Concomitant]
     Active Substance: CEPHALEXIN
     Dosage: UNK
  25. LATANOPROST. [Concomitant]
     Active Substance: LATANOPROST
     Dosage: 50 DOSAGE FORM (50 UG/ML)
  26. ACIDEX                             /01521901/ [Concomitant]
     Active Substance: CALCIUM CARBONATE\SODIUM ALGINATE\SODIUM BICARBONATE
     Dosage: 15 MILLILITER, QD

REACTIONS (1)
  - Hyponatraemia [Not Recovered/Not Resolved]
